FAERS Safety Report 8892405 (Version 2)
Quarter: 2013Q2

REPORT INFORMATION
  Report Type: Spontaneous
  Country: US (occurrence: US)
  Receive Date: 20121107
  Receipt Date: 20130506
  Transmission Date: 20140414
  Serious: Yes (Death)
  Sender: FDA-Public Use
  Company Number: US-GLAXOSMITHKLINE-A1000164A

PATIENT
  Age: 0 Year
  Sex: Female
  Weight: 2.8 kg

DRUGS (2)
  1. PAXIL [Suspect]
     Indication: DEPRESSION
     Dosage: 20MG UNKNOWN
     Route: 064
  2. EFFEXOR [Concomitant]

REACTIONS (4)
  - Asphyxia [Fatal]
  - Cardio-respiratory arrest [Fatal]
  - Tremor [Unknown]
  - Foetal exposure during pregnancy [Unknown]
